FAERS Safety Report 25997914 (Version 1)
Quarter: 2025Q4

REPORT INFORMATION
  Report Type: Spontaneous
  Country: US (occurrence: US)
  Receive Date: 20251105
  Receipt Date: 20251105
  Transmission Date: 20260118
  Serious: No
  Sender: ELI LILLY AND COMPANY
  Company Number: US-ELI_LILLY_AND_COMPANY-US202510027219

PATIENT
  Age: 66 Year
  Sex: Female

DRUGS (5)
  1. EMGALITY [Suspect]
     Active Substance: GALCANEZUMAB-GNLM
     Indication: Ophthalmic migraine
     Dosage: UNK UNK, UNKNOWN
     Route: 065
     Dates: start: 2022
  2. EMGALITY [Suspect]
     Active Substance: GALCANEZUMAB-GNLM
     Indication: Ophthalmic migraine
     Dosage: UNK UNK, UNKNOWN
     Route: 065
     Dates: start: 2022
  3. EMGALITY [Suspect]
     Active Substance: GALCANEZUMAB-GNLM
     Dosage: UNK UNK, UNKNOWN
     Route: 065
     Dates: start: 20251018
  4. EMGALITY [Suspect]
     Active Substance: GALCANEZUMAB-GNLM
     Dosage: UNK UNK, UNKNOWN
     Route: 065
     Dates: start: 20251018
  5. BOTOX [Concomitant]
     Active Substance: ONABOTULINUMTOXINA
     Indication: Migraine
     Dosage: UNK, UNKNOWN
     Route: 065

REACTIONS (2)
  - Injection site pain [Unknown]
  - Drug dose omission by device [Unknown]

NARRATIVE: CASE EVENT DATE: 20251018
